FAERS Safety Report 5689881-1 (Version None)
Quarter: 2008Q1

REPORT INFORMATION
  Report Type: 
  Country: None (occurrence: None)
  Receive Date: 20080331
  Receipt Date: 20080331
  Transmission Date: 20080703
  Serious: Yes (Hospitalization)
  Sender: FDA-Public Use
  Company Number: None

PATIENT
  Age: 57 Year
  Sex: Male

DRUGS (2)
  1. MORPHINE [Suspect]
     Indication: PAIN IN EXTREMITY
     Dosage: 15MG BID PO
     Route: 048
     Dates: start: 20071226, end: 20071228
  2. TRAMADOL HCL [Suspect]
     Indication: PAIN IN EXTREMITY
     Dosage: 50MG QID PO
     Route: 048
     Dates: start: 20071220, end: 20071228

REACTIONS (4)
  - HYPOPNOEA [None]
  - HYPOTENSION [None]
  - RESPIRATORY DEPRESSION [None]
  - SEDATION [None]
